FAERS Safety Report 6436176-4 (Version None)
Quarter: 2009Q4

REPORT INFORMATION
  Report Type: 
  Country: None (occurrence: None)
  Receive Date: 20091110
  Receipt Date: 20071005
  Transmission Date: 20100525
  Serious: No
  Sender: FDA-Public Use
  Company Number: AEUSA200700234

PATIENT
  Age: 73 Year
  Sex: Male

DRUGS (21)
  1. GAMUNEX [Suspect]
     Indication: MYASTHENIA GRAVIS
     Dosage: 40 GM;IX;IV
     Route: 042
     Dates: start: 20071003, end: 20071026
  2. IMMUNE GLOBULIN NOS [Suspect]
     Indication: MYASTHENIA GRAVIS
     Dates: start: 20071002, end: 20071002
  3. HYTRIN [Concomitant]
  4. ASPIRIN /00002703/ [Concomitant]
  5. BUMEX [Concomitant]
  6. POTASSIUM CHLORIDE [Concomitant]
  7. XOLAIR [Concomitant]
  8. SYMBICORT [Concomitant]
  9. XOPENEX [Concomitant]
  10. REGONOL [Concomitant]
  11. IMMUNE GLOBULIN (HUMAN) [Concomitant]
  12. XOPENEX  VITAMIN C [Concomitant]
  13. VITAMIN B-COMPLEX /90004601/ [Concomitant]
  14. FOLIC ACID [Concomitant]
  15. CALCIUM [Concomitant]
  16. CHROMIUM [Concomitant]
  17. SELENIUM [Concomitant]
  18. POTASSIUM CHLORIDE [Concomitant]
  19. ZINC [Concomitant]
  20. TYLENOL (CAPLET) [Concomitant]
  21. ZANTAC BIZ 1 [Concomitant]

REACTIONS (2)
  - BLOOD PRESSURE SYSTOLIC INCREASED [None]
  - INFUSION RELATED REACTION [None]
